FAERS Safety Report 7892670-0 (Version None)
Quarter: 2011Q4

REPORT INFORMATION
  Report Type: 
  Country: None (occurrence: None)
  Receive Date: 20111102
  Receipt Date: 20111018
  Transmission Date: 20120403
  Serious: Yes (Hospitalization)
  Sender: FDA-Public Use
  Company Number: PIN-2011-00005

PATIENT

DRUGS (1)
  1. PHOTOFRIN [Suspect]
     Indication: BILE DUCT CANCER
     Dosage: 2 MG/KG, BODY WEIGHT

REACTIONS (4)
  - EMPYEMA [None]
  - GALLBLADDER DISORDER [None]
  - CHOLECYSTECTOMY [None]
  - OFF LABEL USE [None]
